FAERS Safety Report 20440272 (Version 1)
Quarter: 2022Q1

REPORT INFORMATION
  Report Type: Spontaneous
  Country: US (occurrence: None)
  Receive Date: 20220205
  Receipt Date: 20220205
  Transmission Date: 20220423
  Serious: Yes (Life-Threatening, Disabling)
  Sender: FDA-Public Use
  Company Number: None

PATIENT
  Age: 59 Year
  Sex: Male
  Weight: 76.5 kg

DRUGS (2)
  1. REGLAN [Suspect]
     Active Substance: METOCLOPRAMIDE HYDROCHLORIDE
     Indication: Headache
     Dosage: OTHER QUANTITY : 1 INJECTION(S);?
     Route: 042
     Dates: start: 20201024, end: 20201024
  2. IBUPROFEN [Concomitant]
     Active Substance: IBUPROFEN

REACTIONS (24)
  - Depression [None]
  - Anxiety [None]
  - Near death experience [None]
  - Myocardial infarction [None]
  - Cerebrovascular accident [None]
  - Neuropathy peripheral [None]
  - Eye pain [None]
  - Nerve injury [None]
  - Insomnia [None]
  - Confusional state [None]
  - Palpitations [None]
  - Diplegia [None]
  - Dysarthria [None]
  - Communication disorder [None]
  - Blood pressure increased [None]
  - Headache [None]
  - Paraesthesia [None]
  - Hypoaesthesia [None]
  - Peripheral vascular disorder [None]
  - Night sweats [None]
  - Balance disorder [None]
  - Respiratory rate increased [None]
  - Traumatic lung injury [None]
  - Heart rate increased [None]

NARRATIVE: CASE EVENT DATE: 20201024
